FAERS Safety Report 21671282 (Version 2)
Quarter: 2023Q1

REPORT INFORMATION
  Report Type: Spontaneous
  Country: US (occurrence: US)
  Receive Date: 20221202
  Receipt Date: 20230221
  Transmission Date: 20230418
  Serious: Yes (Hospitalization, Other)
  Sender: FDA-Public Use
  Company Number: US-BIOVITRUM-2022US14139

PATIENT
  Age: 0 Year
  Sex: Male
  Weight: 6 kg

DRUGS (10)
  1. SYNAGIS [Suspect]
     Active Substance: PALIVIZUMAB
     Indication: Gastrostomy
  2. SIMETHICONE (DIMETHICONE) [Concomitant]
     Active Substance: DIMETHICONE
     Dosage: 40 MG/0.6 ML DROP SUSP
  3. SYNAGIS [Suspect]
     Active Substance: PALIVIZUMAB
     Indication: Premature baby
  4. SYNAGIS [Suspect]
     Active Substance: PALIVIZUMAB
     Indication: Cardiac septal defect
  5. IRON\VITAMINS [Concomitant]
     Active Substance: IRON\VITAMINS
  6. SYNAGIS [Suspect]
     Active Substance: PALIVIZUMAB
     Indication: Obstructive sleep apnoea syndrome
  7. EPINEPHRINE [Concomitant]
     Active Substance: EPINEPHRINE
  8. ALBUTEROL SULFATE [Concomitant]
     Active Substance: ALBUTEROL SULFATE
  9. SYNAGIS [Suspect]
     Active Substance: PALIVIZUMAB
     Indication: Foetal growth restriction
  10. SYNAGIS [Suspect]
     Active Substance: PALIVIZUMAB
     Indication: Poor feeding infant

REACTIONS (1)
  - Pneumonia [Unknown]

NARRATIVE: CASE EVENT DATE: 20221125
